FAERS Safety Report 21263080 (Version 1)
Quarter: 2022Q3

REPORT INFORMATION
  Report Type: Spontaneous
  Country: US (occurrence: None)
  Receive Date: 20220826
  Receipt Date: 20220826
  Transmission Date: 20221027
  Serious: Yes (Disabling)
  Sender: FDA-Public Use
  Company Number: None

PATIENT
  Age: 59 Year
  Sex: Female
  Weight: 58.5 kg

DRUGS (8)
  1. LEVAQUIN [Suspect]
     Active Substance: LEVOFLOXACIN
     Indication: Sinusitis
     Dosage: OTHER QUANTITY : 1 TABLET(S);?FREQUENCY : TWICE A DAY;?
     Route: 048
     Dates: start: 19980508, end: 20090108
  2. AMERGE [Concomitant]
     Active Substance: NARATRIPTAN HYDROCHLORIDE
  3. PULMICORT TURBUHALER [Concomitant]
     Active Substance: BUDESONIDE
  4. Seravent [Concomitant]
  5. OXYCODONE [Concomitant]
     Active Substance: OXYCODONE
  6. GABAPENTIN [Concomitant]
     Active Substance: GABAPENTIN
  7. METOPROLOL [Concomitant]
     Active Substance: METOPROLOL
  8. ALBUTEROL [Concomitant]
     Active Substance: ALBUTEROL

REACTIONS (15)
  - Muscular weakness [None]
  - Muscle disorder [None]
  - Tendon rupture [None]
  - Arthralgia [None]
  - Skin atrophy [None]
  - Skin laceration [None]
  - Neuropathy peripheral [None]
  - Memory impairment [None]
  - Tinnitus [None]
  - Loss of personal independence in daily activities [None]
  - Temperature regulation disorder [None]
  - Aortic dilatation [None]
  - Impaired work ability [None]
  - Impaired quality of life [None]
  - General physical health deterioration [None]

NARRATIVE: CASE EVENT DATE: 19980601
